FAERS Safety Report 10364500 (Version 3)
Quarter: 2014Q4

REPORT INFORMATION
  Report Type: Spontaneous
  Country: ES (occurrence: ES)
  Receive Date: 20140806
  Receipt Date: 20141124
  Transmission Date: 20150528
  Serious: Yes (Hospitalization)
  Sender: FDA-Public Use
  Company Number: ES-JNJFOC-20140801027

PATIENT
  Age: 68 Year
  Sex: Male

DRUGS (3)
  1. TIMOFTOL [Suspect]
     Active Substance: TIMOLOL MALEATE
     Indication: EYE DISORDER
     Route: 047
     Dates: end: 201407
  2. PALEXIA [Suspect]
     Active Substance: TAPENTADOL HYDROCHLORIDE
     Indication: ARTHRALGIA
     Route: 048
     Dates: start: 201401, end: 201407
  3. DOLPAR [Interacting]
     Active Substance: TRAMADOL HYDROCHLORIDE
     Indication: ARTHRALGIA
     Route: 048

REACTIONS (5)
  - Tremor [Not Recovered/Not Resolved]
  - Drug interaction [Recovered/Resolved]
  - Hypotension [Not Recovered/Not Resolved]
  - Loss of consciousness [Recovered/Resolved]
  - Slow speech [Recovered/Resolved]

NARRATIVE: CASE EVENT DATE: 201407
